FAERS Safety Report 6933021-5 (Version None)
Quarter: 2010Q3

REPORT INFORMATION
  Report Type: 
  Country: None (occurrence: None)
  Receive Date: 20100818
  Receipt Date: 20100818
  Transmission Date: 20110219
  Serious: Yes (Hospitalization)
  Sender: FDA-Public Use
  Company Number: None

PATIENT
  Age: 61 Year
  Sex: Male

DRUGS (1)
  1. REGULAR INSULIN [Suspect]
     Indication: DIABETES MELLITUS
     Dosage: 40 UNITS AM SQ
     Route: 058
     Dates: start: 20100519

REACTIONS (5)
  - ASTHENIA [None]
  - DIZZINESS [None]
  - HYPERGLYCAEMIA [None]
  - SOMNOLENCE [None]
  - SYNCOPE [None]
